FAERS Safety Report 6306306-3 (Version None)
Quarter: 2009Q3

REPORT INFORMATION
  Report Type: 
  Country: None (occurrence: None)
  Receive Date: 20090812
  Receipt Date: 20090803
  Transmission Date: 20100115
  Serious: Yes (Hospitalization)
  Sender: FDA-Public Use
  Company Number: PHHY2009DE27596

PATIENT
  Sex: Female
  Weight: 80 kg

DRUGS (2)
  1. TRILEPTAL [Suspect]
     Dosage: 300MG, DAILY
     Route: 048
     Dates: start: 20090701, end: 20090701
  2. TRILEPTAL [Suspect]
     Dosage: 600MG, DAILY
     Route: 048
     Dates: start: 20090701

REACTIONS (2)
  - PNEUMONIA [None]
  - PULMONARY EMBOLISM [None]
